FAERS Safety Report 19778575 (Version 1)
Quarter: 2021Q3

REPORT INFORMATION
  Report Type: Spontaneous
  Country: IL (occurrence: IL)
  Receive Date: 20210902
  Receipt Date: 20210902
  Transmission Date: 20211014
  Serious: Yes (Death, Hospitalization)
  Sender: FDA-Public Use
  Company Number: IL-STRIDES ARCOLAB LIMITED-2021SP027111

PATIENT
  Age: 68 Year
  Sex: Male

DRUGS (4)
  1. ALDOSPIRONE [Concomitant]
     Active Substance: SPIRONOLACTONE
     Indication: OEDEMA PERIPHERAL
     Dosage: UNK
     Route: 065
  2. FUROSEMIDE. [Concomitant]
     Active Substance: FUROSEMIDE
     Indication: OEDEMA PERIPHERAL
     Dosage: UNK
     Route: 065
  3. DACARBAZINE. [Suspect]
     Active Substance: DACARBAZINE
     Indication: METASTATIC MALIGNANT MELANOMA
     Dosage: UNK, CYCLICAL,  THREE COURSES WERE COMPLETED
     Route: 065
  4. PREDNISOLONE. [Suspect]
     Active Substance: PREDNISOLONE
     Indication: GUILLAIN-BARRE SYNDROME
     Dosage: 20 MILLIGRAM, RECEIVED ABOUT 1 MONTH PRIOR TO THE CURRENT PRESENTATION
     Route: 065

REACTIONS (2)
  - Anuria [Fatal]
  - Tumour lysis syndrome [Fatal]
